FAERS Safety Report 22040720 (Version 1)
Quarter: 2023Q1

REPORT INFORMATION
  Report Type: Spontaneous
  Country: PL (occurrence: PL)
  Receive Date: 20230227
  Receipt Date: 20230227
  Transmission Date: 20230417
  Serious: Yes (Life-Threatening, Hospitalization, Other)
  Sender: FDA-Public Use
  Company Number: PL-PFIZER INC-PV202300033049

PATIENT
  Age: 16 Year
  Sex: Female

DRUGS (2)
  1. METHYLPREDNISOLONE SODIUM SUCCINATE [Suspect]
     Active Substance: METHYLPREDNISOLONE SODIUM SUCCINATE
     Indication: Immune thrombocytopenia
     Dosage: PULSES OF HIGH DOSES
     Route: 042
  2. PREDNISONE [Suspect]
     Active Substance: PREDNISONE
     Indication: Immune thrombocytopenia
     Dosage: UNK
     Route: 048

REACTIONS (14)
  - Haemorrhage intracranial [Unknown]
  - Drug ineffective [Recovering/Resolving]
  - Dyspnoea [Unknown]
  - Melaena [Unknown]
  - Anaemia [Unknown]
  - Gastrointestinal haemorrhage [Unknown]
  - Loss of consciousness [Unknown]
  - Facial paralysis [Unknown]
  - Hemiplegia [Not Recovered/Not Resolved]
  - Mucosal haemorrhage [Unknown]
  - Haematuria [Unknown]
  - Hypofibrinogenaemia [Unknown]
  - Tooth injury [Unknown]
  - Petechiae [Unknown]

NARRATIVE: CASE EVENT DATE: 20211010
